FAERS Safety Report 16597586 (Version 1)
Quarter: 2019Q3

REPORT INFORMATION
  Report Type: Report from Study
  Country: DE (occurrence: DE)
  Receive Date: 20190719
  Receipt Date: 20190719
  Transmission Date: 20191004
  Serious: Yes (Hospitalization)
  Sender: FDA-Public Use
  Company Number: DE-BAYER-2019-131501

PATIENT
  Age: 22 Year
  Sex: Female

DRUGS (1)
  1. KYLEENA [Suspect]
     Active Substance: LEVONORGESTREL
     Indication: CONTRACEPTION
     Dosage: 17.5 MCG/24HR, CONT
     Route: 015
     Dates: start: 20181213

REACTIONS (7)
  - Pelvic abscess [Recovered/Resolved]
  - Abdominal pain lower [Recovered/Resolved]
  - Ovarian cyst [None]
  - Abdominal tenderness [Recovered/Resolved]
  - Salpingo-oophoritis [Recovered/Resolved]
  - Peritoneal adhesions [Recovered/Resolved]
  - Appendicitis [Recovered/Resolved]

NARRATIVE: CASE EVENT DATE: 20190106
